FAERS Safety Report 13914975 (Version 1)
Quarter: 2017Q3

REPORT INFORMATION
  Report Type: Report from Study
  Country: CO (occurrence: CO)
  Receive Date: 20170829
  Receipt Date: 20170829
  Transmission Date: 20171127
  Serious: Yes (Death, Hospitalization)
  Sender: FDA-Public Use
  Company Number: CO-ROCHE-1983072

PATIENT
  Age: 65 Year
  Sex: Female
  Weight: 33 kg

DRUGS (1)
  1. ERIVEDGE [Suspect]
     Active Substance: VISMODEGIB
     Indication: BASAL CELL CARCINOMA
     Route: 048
     Dates: start: 20170328, end: 201707

REACTIONS (8)
  - Decreased appetite [Fatal]
  - Dehydration [Fatal]
  - Asthenia [Fatal]
  - Diarrhoea [Fatal]
  - Weight decreased [Fatal]
  - Malaise [Fatal]
  - Chest pain [Fatal]
  - Gait disturbance [Fatal]

NARRATIVE: CASE EVENT DATE: 201704
